FAERS Safety Report 6869123-1 (Version None)
Quarter: 2010Q3

REPORT INFORMATION
  Report Type: 
  Country: None (occurrence: None)
  Receive Date: 20100722
  Receipt Date: 20080701
  Transmission Date: 20110219
  Serious: No
  Sender: FDA-Public Use
  Company Number: US-PFIZER INC-2008055525

PATIENT
  Sex: Male
  Weight: 109.1 kg

DRUGS (4)
  1. CHANTIX [Suspect]
     Indication: TOBACCO USER
     Dates: start: 20080601
  2. DRUG, UNSPECIFIED [Concomitant]
  3. ACETYLSALICYLIC ACID [Concomitant]
  4. ZYRTEC [Concomitant]

REACTIONS (1)
  - INSOMNIA [None]
